FAERS Safety Report 20785279 (Version 1)
Quarter: 2022Q2

REPORT INFORMATION
  Report Type: Spontaneous
  Country: US (occurrence: None)
  Receive Date: 20220504
  Receipt Date: 20220504
  Transmission Date: 20220721
  Serious: No
  Sender: FDA-Public Use
  Company Number: None

PATIENT
  Age: 48 Year
  Sex: Female

DRUGS (2)
  1. ENBREL [Suspect]
     Active Substance: ETANERCEPT
     Indication: Spinal osteoarthritis
     Dosage: FREQUENCY : WEEKLY;?
     Route: 058
     Dates: start: 20220316, end: 20220322
  2. HUMIRA [Suspect]
     Active Substance: ADALIMUMAB
     Indication: Spinal osteoarthritis
     Dosage: OTHER FREQUENCY : EVRY 14 DAYS;?
     Route: 058
     Dates: start: 20220327

REACTIONS (6)
  - Drug ineffective [None]
  - Spinal osteoarthritis [None]
  - Arthralgia [None]
  - Joint swelling [None]
  - Joint stiffness [None]
  - Insurance issue [None]

NARRATIVE: CASE EVENT DATE: 20220301
